FAERS Safety Report 11009402 (Version 1)
Quarter: 2015Q2

REPORT INFORMATION
  Report Type: Spontaneous
  Country: JP (occurrence: JP)
  Receive Date: 20150410
  Receipt Date: 20150410
  Transmission Date: 20150821
  Serious: Yes (Other)
  Sender: FDA-Public Use
  Company Number: PHHY2015JP039587

PATIENT
  Age: 40 Year
  Sex: Female

DRUGS (5)
  1. IRINOTECAN [Concomitant]
     Active Substance: IRINOTECAN
     Indication: CERVIX CARCINOMA STAGE II
     Dosage: 160 MG/M2, UNK, THREE CYCLES
     Route: 065
  2. CARBOPLATIN. [Suspect]
     Active Substance: CARBOPLATIN
     Indication: CERVIX CARCINOMA STAGE II
     Dosage: 5 MG/ML, UNK
     Route: 065
  3. NEDAPLATIN [Concomitant]
     Active Substance: NEDAPLATIN
     Indication: CERVIX CARCINOMA STAGE II
     Dosage: 80 MG/M2, UNK, THREE CYCLES
     Route: 065
  4. CISPLATIN. [Concomitant]
     Active Substance: CISPLATIN
     Indication: CERVIX CARCINOMA STAGE II
     Dosage: 70 MG/M2, UNK, THREE CYCLES
     Route: 065
  5. DOCETAXEL. [Suspect]
     Active Substance: DOCETAXEL
     Indication: CERVIX CARCINOMA STAGE II
     Dosage: 75 MG/M2, UNK, 7 CYCLES
     Route: 065

REACTIONS (3)
  - Urinary bladder haemorrhage [Unknown]
  - Abdominal pain [Unknown]
  - Drug ineffective [Unknown]
